FAERS Safety Report 5707353-2 (Version None)
Quarter: 2008Q2

REPORT INFORMATION
  Report Type: 
  Country: None (occurrence: None)
  Receive Date: 20080416
  Receipt Date: 20080413
  Transmission Date: 20081010
  Serious: Yes (Death)
  Sender: FDA-Public Use
  Company Number: DE-ASTRAZENECA-2008PK00761

PATIENT
  Age: 42 Year
  Sex: Male

DRUGS (1)
  1. NAROPIN [Suspect]
     Indication: ANAESTHESIA
     Route: 053

REACTIONS (1)
  - DEATH [None]
